FAERS Safety Report 5574045-2 (Version None)
Quarter: 2007Q4

REPORT INFORMATION
  Report Type: 
  Country: None (occurrence: None)
  Receive Date: 20071221
  Receipt Date: 20071213
  Transmission Date: 20080405
  Serious: Yes (Hospitalization)
  Sender: FDA-Public Use
  Company Number: TCI2007A06849

PATIENT
  Sex: Male

DRUGS (5)
  1. ACTOS [Suspect]
     Indication: DIABETES MELLITUS
     Dosage: 15 MG (15 MG, 1 IN 1 D), PER ORAL
     Route: 048
     Dates: start: 20070919, end: 20070919
  2. BASEN OD TABLETS 0.3 (VOGLIBOSE) [Concomitant]
  3. NORVASC [Concomitant]
  4. NATEGLINIDE [Concomitant]
  5. STARSIS (LORNOXICAM) [Concomitant]

REACTIONS (3)
  - DIABETES MELLITUS INADEQUATE CONTROL [None]
  - DRUG ERUPTION [None]
  - URTICARIA [None]
